FAERS Safety Report 9235007 (Version 1)
Quarter: 2013Q2

REPORT INFORMATION
  Report Type: Spontaneous
  Country: US (occurrence: US)
  Receive Date: 20130416
  Receipt Date: 20130416
  Transmission Date: 20140414
  Serious: No
  Sender: FDA-Public Use
  Company Number: US-BAYER-2013-047910

PATIENT
  Age: 75 Year
  Sex: Female
  Weight: 62.59 kg

DRUGS (2)
  1. ALEVE CAPLET [Suspect]
     Indication: ARTHRITIS
     Dosage: 1 DF, TID
     Route: 048
     Dates: start: 2012
  2. ANTIHYPERTENSIVES [Concomitant]

REACTIONS (2)
  - Incorrect drug administration duration [None]
  - Drug ineffective [None]
